FAERS Safety Report 5069517-3 (Version None)
Quarter: 2006Q3

REPORT INFORMATION
  Report Type: 
  Country: None (occurrence: None)
  Receive Date: 20060803
  Receipt Date: 20060724
  Transmission Date: 20061208
  Serious: Yes (Disabling)
  Sender: FDA-Public Use
  Company Number: IT-ROCHE-456612

PATIENT
  Age: 54 Year
  Sex: Female

DRUGS (1)
  1. PEGASYS [Suspect]
     Indication: HEPATITIS B
     Dosage: FORM REPORTED AS VIAL.
     Route: 058
     Dates: start: 20050401, end: 20060401

REACTIONS (1)
  - MUSCLE HYPERTROPHY [None]
